FAERS Safety Report 23112956 (Version 1)
Quarter: 2023Q4

REPORT INFORMATION
  Report Type: Spontaneous
  Country: US (occurrence: US)
  Receive Date: 20231027
  Receipt Date: 20231027
  Transmission Date: 20240109
  Serious: No
  Sender: FDA-Public Use
  Company Number: US-INSUD PHARMA-2310US07298

PATIENT

DRUGS (2)
  1. SLYND [Suspect]
     Active Substance: DROSPIRENONE
     Indication: Heavy menstrual bleeding
     Dosage: UNK, QD
     Route: 048
     Dates: start: 2021, end: 2023
  2. SLYND [Suspect]
     Active Substance: DROSPIRENONE
     Indication: Contraception

REACTIONS (9)
  - Menopause [Not Recovered/Not Resolved]
  - Blood oestrogen decreased [Recovering/Resolving]
  - Hot flush [Unknown]
  - Menopausal symptoms [Unknown]
  - Endometrial thinning [Unknown]
  - Amenorrhoea [Not Recovered/Not Resolved]
  - Intermenstrual bleeding [Recovered/Resolved]
  - Drug effective for unapproved indication [Unknown]
  - Off label use [Unknown]

NARRATIVE: CASE EVENT DATE: 20210101
